FAERS Safety Report 6847633-0 (Version None)
Quarter: 2010Q3

REPORT INFORMATION
  Report Type: 
  Country: None (occurrence: None)
  Receive Date: 20100716
  Receipt Date: 20100703
  Transmission Date: 20110219
  Serious: Yes (Hospitalization, Other)
  Sender: FDA-Public Use
  Company Number: PHHY2010MX44147

PATIENT
  Age: 53 Year
  Sex: Male

DRUGS (12)
  1. ACLASTA [Suspect]
     Indication: OSTEOPOROSIS
     Dosage: 1 AMPOULE (5 MG/100) PER YEAR
  2. INSULINE [Concomitant]
     Dosage: 48 IU, UNK
     Route: 062
  3. SACTOS [Concomitant]
     Dosage: 1 DF, DAILY
  4. ONGLYA [Concomitant]
     Dosage: 1 DF, DAILY
  5. METFORMIN HCL [Concomitant]
     Dosage: 1 DF, DAILY
  6. LYRICA [Concomitant]
     Dosage: 1 DF, DAILY
  7. DENALOT [Concomitant]
     Dosage: 1 DF, DAILY
  8. TROXERUTIN [Concomitant]
     Dosage: 1 DF, DAILY
  9. UNAMOL [Concomitant]
     Dosage: 2 DF, DAILY
  10. ASPIRIN [Concomitant]
     Dosage: 1 DF, DAILY
  11. ENALAPRIL MALEATE [Concomitant]
     Dosage: 0.5 DF, DAILY
  12. DIABION [Concomitant]
     Dosage: 1 DF, DAILY

REACTIONS (7)
  - ASTHENIA [None]
  - BEDRIDDEN [None]
  - BLISTER INFECTED [None]
  - FEELING DRUNK [None]
  - GAIT DISTURBANCE [None]
  - PAIN [None]
  - PYREXIA [None]
